FAERS Safety Report 15043946 (Version 2)
Quarter: 2022Q1

REPORT INFORMATION
  Report Type: Spontaneous
  Country: US (occurrence: US)
  Receive Date: 20180621
  Receipt Date: 20220130
  Transmission Date: 20220424
  Serious: Yes (Death, Other)
  Sender: FDA-Public Use
  Company Number: US-JAZZ-2018-US-009633

PATIENT
  Age: 33 Year
  Sex: Male

DRUGS (1)
  1. ASPARAGINASE [Suspect]
     Active Substance: ASPARAGINASE
     Indication: Non-Hodgkin^s lymphoma recurrent
     Dosage: UNKNOWN DOSE
     Route: 065

REACTIONS (7)
  - Multiple organ dysfunction syndrome [Fatal]
  - Drug-induced liver injury [Unknown]
  - Ascites [Unknown]
  - Acute kidney injury [Unknown]
  - Encephalopathy [Unknown]
  - Pancytopenia [Unknown]
  - Hepatomegaly [Unknown]
